FAERS Safety Report 19495771 (Version 1)
Quarter: 2021Q3

REPORT INFORMATION
  Report Type: Spontaneous
  Country: US (occurrence: US)
  Receive Date: 20210701
  Receipt Date: 20210701
  Transmission Date: 20211014
  Serious: Yes (Other)
  Sender: FDA-Public Use
  Company Number: None

PATIENT
  Age: 43 Year
  Sex: Female
  Weight: 109.35 kg

DRUGS (5)
  1. SYNTHROID [Suspect]
     Active Substance: LEVOTHYROXINE SODIUM
     Indication: HYPOTHYROIDISM
     Dosage: QUANTITY:1 DF DOSAGE FORM; 1 TABLET?
     Route: 048
  2. METOPROLOL. [Concomitant]
     Active Substance: METOPROLOL
  3. TUMS [Concomitant]
     Active Substance: CALCIUM CARBONATE
  4. ASPIRIN. [Concomitant]
     Active Substance: ASPIRIN
  5. PROTONIX [Concomitant]
     Active Substance: PANTOPRAZOLE SODIUM

REACTIONS (11)
  - Muscle spasms [None]
  - Palpitations [None]
  - Hyperhidrosis [None]
  - Vision blurred [None]
  - Fatigue [None]
  - Dizziness [None]
  - Asthenia [None]
  - Bone pain [None]
  - Syncope [None]
  - Chest pain [None]
  - Disorientation [None]

NARRATIVE: CASE EVENT DATE: 20210616
